FAERS Safety Report 20717663 (Version 18)
Quarter: 2023Q1

REPORT INFORMATION
  Report Type: Spontaneous
  Country: CA (occurrence: CA)
  Receive Date: 20220417
  Receipt Date: 20230302
  Transmission Date: 20230418
  Serious: Yes (Other)
  Sender: FDA-Public Use
  Company Number: CA-CELLTRION INC.-2020CA024964

PATIENT

DRUGS (43)
  1. INFLECTRA [Suspect]
     Active Substance: INFLIXIMAB-DYYB
     Indication: Crohn^s disease
     Dosage: 400 MG, (5 MG/KG), AT 0, 2, 6, THEN EVERY 8 WEEKS
     Route: 042
     Dates: start: 20200801
  2. INFLECTRA [Suspect]
     Active Substance: INFLIXIMAB-DYYB
     Dosage: 5 MG/KG, Q 0, 2, 6, THEN EVERY 8 WEEKS
     Route: 042
     Dates: start: 20200801, end: 20201107
  3. INFLECTRA [Suspect]
     Active Substance: INFLIXIMAB-DYYB
     Dosage: 400 MG, (5 MG/KG), AT 0, 2, 6, THEN EVERY 8 WEEKS
     Route: 042
     Dates: start: 20200814
  4. INFLECTRA [Suspect]
     Active Substance: INFLIXIMAB-DYYB
     Dosage: 400 MG, (5 MG/KG), AT 0, 2, 6, THEN EVERY 8 WEEKS
     Route: 042
     Dates: start: 20200912
  5. INFLECTRA [Suspect]
     Active Substance: INFLIXIMAB-DYYB
     Dosage: 400 MG, (5 MG/KG), AT 0, 2, 6, THEN EVERY 8 WEEKS
     Route: 042
     Dates: start: 20201107
  6. INFLECTRA [Suspect]
     Active Substance: INFLIXIMAB-DYYB
     Dosage: 400 MG, (5 MG/KG), AT 0, 2, 6, THEN EVERY 8 WEEKS
     Route: 042
     Dates: start: 20201205
  7. INFLECTRA [Suspect]
     Active Substance: INFLIXIMAB-DYYB
     Dosage: 700 MG, (10MG/KG), EVERY 4 WEEKS (700MG OR 10MG/KG )
     Route: 042
     Dates: start: 20201205
  8. INFLECTRA [Suspect]
     Active Substance: INFLIXIMAB-DYYB
     Dosage: 400 MG, (5 MG/KG), AT 0, 2, 6, THEN EVERY 8 WEEKS
     Route: 042
     Dates: start: 20210107
  9. INFLECTRA [Suspect]
     Active Substance: INFLIXIMAB-DYYB
     Dosage: 700 MG, (10 MG/KG), EVERY 4 WEEKS
     Route: 042
     Dates: start: 20210130
  10. INFLECTRA [Suspect]
     Active Substance: INFLIXIMAB-DYYB
     Dosage: 700 MG, (10 MG/KG), EVERY 4 WEEKS
     Route: 042
     Dates: start: 20210227
  11. INFLECTRA [Suspect]
     Active Substance: INFLIXIMAB-DYYB
     Dosage: 700 MG, (10 MG/KG), EVERY 4 WEEKS
     Route: 042
     Dates: start: 20210327
  12. INFLECTRA [Suspect]
     Active Substance: INFLIXIMAB-DYYB
     Dosage: 700 MG, (10 MG/KG), EVERY 4 WEEKS
     Route: 042
     Dates: start: 20210424
  13. INFLECTRA [Suspect]
     Active Substance: INFLIXIMAB-DYYB
     Dosage: 700 MG, (10 MG/KG), EVERY 4 WEEKS
     Route: 042
     Dates: start: 20210522
  14. INFLECTRA [Suspect]
     Active Substance: INFLIXIMAB-DYYB
     Dosage: 700 MG, (10 MG/KG), EVERY 4 WEEKS
     Route: 042
     Dates: start: 20210619
  15. INFLECTRA [Suspect]
     Active Substance: INFLIXIMAB-DYYB
     Dosage: 700 MG, (10 MG/KG), EVERY 4 WEEKS
     Route: 042
     Dates: start: 20210814
  16. INFLECTRA [Suspect]
     Active Substance: INFLIXIMAB-DYYB
     Dosage: 700 MG, (10 MG/KG), EVERY 4 WEEKS
     Route: 042
     Dates: start: 20211106
  17. INFLECTRA [Suspect]
     Active Substance: INFLIXIMAB-DYYB
     Dosage: 700 MG, (10 MG/KG), EVERY 4 WEEKS
     Route: 042
     Dates: start: 20211203
  18. INFLECTRA [Suspect]
     Active Substance: INFLIXIMAB-DYYB
     Dosage: 700 MG, (10 MG/KG), EVERY 4 WEEKS
     Route: 042
     Dates: start: 20211231
  19. INFLECTRA [Suspect]
     Active Substance: INFLIXIMAB-DYYB
     Dosage: 700 MG, (10 MG/KG), EVERY 4 WEEKS
     Route: 042
     Dates: start: 20220129
  20. INFLECTRA [Suspect]
     Active Substance: INFLIXIMAB-DYYB
     Dosage: 700 MG, (10 MG/KG), EVERY 4 WEEKS
     Route: 042
     Dates: start: 20220226
  21. INFLECTRA [Suspect]
     Active Substance: INFLIXIMAB-DYYB
     Dosage: 700 MG, (10 MG/KG), EVERY 4 WEEKS
     Route: 042
     Dates: start: 20220416
  22. INFLECTRA [Suspect]
     Active Substance: INFLIXIMAB-DYYB
     Dosage: 700 MG, (10 MG/KG), EVERY 4 WEEKS
     Route: 042
     Dates: start: 20220528
  23. INFLECTRA [Suspect]
     Active Substance: INFLIXIMAB-DYYB
     Dosage: 700 MG, (10 MG/KG), EVERY 4 WEEKS
     Route: 042
     Dates: start: 20220625
  24. INFLECTRA [Suspect]
     Active Substance: INFLIXIMAB-DYYB
     Dosage: 700 MG, (10 MG/KG), EVERY 4 WEEKS
     Route: 042
     Dates: start: 20220723
  25. INFLECTRA [Suspect]
     Active Substance: INFLIXIMAB-DYYB
     Dosage: 700 MG, (10 MG/KG), EVERY 4 WEEKS
     Route: 042
     Dates: start: 20220827
  26. INFLECTRA [Suspect]
     Active Substance: INFLIXIMAB-DYYB
     Dosage: 700 MG, (10MG/KG)  , EVERY 4 WEEKS
     Route: 042
     Dates: start: 20220927
  27. INFLECTRA [Suspect]
     Active Substance: INFLIXIMAB-DYYB
     Dosage: 700 MG, (10MG/KG)  , EVERY 4 WEEKS
     Route: 042
     Dates: start: 20221025
  28. INFLECTRA [Suspect]
     Active Substance: INFLIXIMAB-DYYB
     Dosage: 780 MG, (10MG/KG)  , EVERY 4 WEEKS
     Route: 042
     Dates: start: 20221220
  29. INFLECTRA [Suspect]
     Active Substance: INFLIXIMAB-DYYB
     Dosage: 700 MG, EVERY 4 WEEKS
     Route: 042
     Dates: start: 20230117
  30. INFLECTRA [Suspect]
     Active Substance: INFLIXIMAB-DYYB
     Dosage: 700 MG, EVERY 4 WEEKS
     Route: 042
     Dates: start: 20230214
  31. ACETAMINOPHEN [Concomitant]
     Active Substance: ACETAMINOPHEN
     Indication: Premedication
     Dosage: 650 MG
     Route: 048
     Dates: start: 20200801, end: 20200801
  32. ACETAMINOPHEN [Concomitant]
     Active Substance: ACETAMINOPHEN
     Dosage: 650 MG
     Route: 048
     Dates: start: 20200814, end: 20200814
  33. ACETAMINOPHEN [Concomitant]
     Active Substance: ACETAMINOPHEN
     Dosage: 650 MG
     Dates: start: 20200912, end: 20200912
  34. ACETAMINOPHEN [Concomitant]
     Active Substance: ACETAMINOPHEN
     Dosage: 650 MG
     Dates: start: 20221220, end: 20221220
  35. FOLIC ACID [Concomitant]
     Active Substance: FOLIC ACID
     Dosage: UNK
  36. FOLIC ACID [Concomitant]
     Active Substance: FOLIC ACID
     Dosage: 1 DF,DOSAGE NOT AVAILABLE
     Route: 065
  37. HYDROCORTISONE [Concomitant]
     Active Substance: HYDROCORTISONE
     Indication: Premedication
     Dosage: 100 MG
     Dates: start: 20200801, end: 20200801
  38. HYDROCORTISONE [Concomitant]
     Active Substance: HYDROCORTISONE
     Dosage: 100 MG
     Route: 042
     Dates: start: 20200814, end: 20200814
  39. HYDROCORTISONE [Concomitant]
     Active Substance: HYDROCORTISONE
     Dosage: 100 MG
     Dates: start: 20200912, end: 20200912
  40. IMURAN [Concomitant]
     Active Substance: AZATHIOPRINE
     Dosage: UNK
  41. IMURAN [Concomitant]
     Active Substance: AZATHIOPRINE
     Dosage: 1 DF, DOSAGE NOT AVAILABLE
  42. METHOTREXATE [Concomitant]
     Active Substance: METHOTREXATE
     Dosage: UNK 1 DF
     Dates: start: 20200705
  43. METHOTREXATE [Concomitant]
     Active Substance: METHOTREXATE
     Dosage: 1 DF, DOSAGE INFO: UNKNOWN

REACTIONS (31)
  - Ileocaecal resection [Unknown]
  - Pain [Not Recovered/Not Resolved]
  - Anal fistula [Not Recovered/Not Resolved]
  - Weight increased [Unknown]
  - Poor venous access [Recovered/Resolved]
  - Vein collapse [Unknown]
  - Muscle spasms [Unknown]
  - Pain in extremity [Unknown]
  - General symptom [Not Recovered/Not Resolved]
  - Nasal congestion [Not Recovered/Not Resolved]
  - Malaise [Not Recovered/Not Resolved]
  - Arthralgia [Not Recovered/Not Resolved]
  - Chest pain [Unknown]
  - Back pain [Unknown]
  - COVID-19 [Recovered/Resolved]
  - Infection [Recovered/Resolved]
  - Myalgia [Unknown]
  - Hypoaesthesia [Recovered/Resolved]
  - Paraesthesia [Recovered/Resolved]
  - Weight decreased [Unknown]
  - Infection [Unknown]
  - Oropharyngeal pain [Not Recovered/Not Resolved]
  - Nasopharyngitis [Unknown]
  - Hypertension [Unknown]
  - Drug level below therapeutic [Unknown]
  - Condition aggravated [Not Recovered/Not Resolved]
  - Inappropriate schedule of product administration [Unknown]
  - Intentional product use issue [Unknown]
  - Off label use [Unknown]
  - Off label use [Unknown]
  - Anal fissure [Unknown]

NARRATIVE: CASE EVENT DATE: 20200814
